FAERS Safety Report 9242880 (Version 1)
Quarter: 2013Q2

REPORT INFORMATION
  Report Type: Report from Study
  Country: US (occurrence: US)
  Receive Date: 20130419
  Receipt Date: 20130419
  Transmission Date: 20140414
  Serious: Yes (Hospitalization, Other)
  Sender: FDA-Public Use
  Company Number: US-ABBOTT-13P-163-1075709-00

PATIENT
  Age: 61 Year
  Sex: Male
  Weight: 74.91 kg

DRUGS (2)
  1. HUMIRA PEN [Suspect]
     Indication: RHEUMATOID ARTHRITIS
     Dates: start: 2004
  2. UNKNOWN MEDICATION [Concomitant]
     Indication: OSTEOPENIA

REACTIONS (3)
  - Wheelchair user [Unknown]
  - Fall [Recovered/Resolved]
  - Foot fracture [Recovered/Resolved]
